FAERS Safety Report 5515317-7 (Version None)
Quarter: 2007Q4

REPORT INFORMATION
  Report Type: 
  Country: None (occurrence: None)
  Receive Date: 20071113
  Receipt Date: 20071109
  Transmission Date: 20080405
  Serious: Yes (Other)
  Sender: FDA-Public Use
  Company Number: GB-BOEHRINGER INGELHEIM PHARMACEUTICALS, INC.-2007-UK-03545UK

PATIENT
  Age: 65 Year
  Sex: Female

DRUGS (2)
  1. TIOTROPIUM (00015/0190/A) [Suspect]
     Route: 055
     Dates: start: 20070201
  2. ALBUTEROL [Concomitant]

REACTIONS (2)
  - DRUG ADMINISTRATION ERROR [None]
  - MEDICAL DEVICE COMPLICATION [None]
